FAERS Safety Report 4498752-8 (Version None)
Quarter: 2004Q4

REPORT INFORMATION
  Report Type: 
  Country: None (occurrence: None)
  Receive Date: 20041108
  Receipt Date: 20040924
  Transmission Date: 20050328
  Serious: Yes (Other)
  Sender: FDA-Public Use
  Company Number: 20035600-C622753-000

PATIENT
  Age: 20 Year
  Sex: Male
  Weight: 58.0604 kg

DRUGS (4)
  1. SODIUM CHLORIDE 0.9% [Suspect]
     Indication: PLASMAPHERESIS
     Dosage: IV
     Route: 042
  2. ALBUTEROL [Concomitant]
  3. ZYRTEC [Concomitant]
  4. SEPTRA [Concomitant]

REACTIONS (2)
  - HAEMATURIA [None]
  - POST PROCEDURAL COMPLICATION [None]
